FAERS Safety Report 19327386 (Version 1)
Quarter: 2021Q2

REPORT INFORMATION
  Report Type: Spontaneous
  Country: MY (occurrence: MY)
  Receive Date: 20210528
  Receipt Date: 20210528
  Transmission Date: 20210717
  Serious: Yes (Other)
  Sender: FDA-Public Use
  Company Number: MY-TORRENT-00000281

PATIENT
  Age: 23 Year
  Sex: Female

DRUGS (4)
  1. QUETIAPINE. [Suspect]
     Active Substance: QUETIAPINE
     Indication: DEPRESSION
     Dosage: 50 MG PER DAY
  2. LORAZEPAM. [Concomitant]
     Active Substance: LORAZEPAM
     Indication: MAJOR DEPRESSION
  3. DESVENLAFAXINE. [Concomitant]
     Active Substance: DESVENLAFAXINE
     Indication: MAJOR DEPRESSION
  4. LITHIUM. [Concomitant]
     Active Substance: LITHIUM
     Indication: SCHIZOAFFECTIVE DISORDER DEPRESSIVE TYPE
     Dosage: ON

REACTIONS (3)
  - Sleep-related eating disorder [Recovered/Resolved]
  - Off label use [Recovered/Resolved]
  - Weight increased [Unknown]
